FAERS Safety Report 9474765 (Version 1)
Quarter: 2013Q3

REPORT INFORMATION
  Report Type: Spontaneous
  Country: CN (occurrence: CN)
  Receive Date: 20130823
  Receipt Date: 20130823
  Transmission Date: 20140515
  Serious: Yes (Other)
  Sender: FDA-Public Use
  Company Number: CN-BAXTER-2013BAX032696

PATIENT
  Age: 37 Year
  Sex: Female

DRUGS (11)
  1. METRONIDAZOLE [Suspect]
     Indication: MYCOPLASMA INFECTION
     Route: 065
  2. MAGNESIUM SULFATE [Suspect]
     Indication: TOCOLYSIS
     Route: 065
  3. MAGNESIUM SULFATE [Suspect]
     Route: 065
  4. NIFEDIPINE [Suspect]
     Indication: TOCOLYSIS
     Route: 065
  5. ATOSIBAN [Suspect]
     Indication: TOCOLYSIS
     Route: 065
  6. ATOSIBAN [Suspect]
     Indication: UTERINE CONTRACTIONS DURING PREGNANCY
  7. CEFTRIAXONE [Suspect]
     Indication: MYCOPLASMA INFECTION
     Route: 065
  8. CEFTRIAXONE [Suspect]
     Route: 065
  9. ERYTHROMYCIN [Suspect]
     Indication: UREAPLASMA INFECTION
  10. ERYTHROMYCIN [Suspect]
     Route: 048
  11. DEXAMETHASONE [Suspect]
     Indication: MYCOPLASMA INFECTION
     Route: 065

REACTIONS (3)
  - Exposure during pregnancy [Recovered/Resolved]
  - Premature rupture of membranes [Recovered/Resolved]
  - Premature delivery [Recovered/Resolved]
